FAERS Safety Report 5056580-9 (Version None)
Quarter: 2006Q3

REPORT INFORMATION
  Report Type: 
  Country: None (occurrence: None)
  Receive Date: 20060714
  Receipt Date: 20060629
  Transmission Date: 20061208
  Serious: Yes (Other)
  Sender: FDA-Public Use
  Company Number: US-2006-013949

PATIENT
  Age: 36 Year
  Sex: Female
  Weight: 90.7 kg

DRUGS (3)
  1. BETASERON [Suspect]
     Indication: RELAPSING-REMITTING MULTIPLE SCLEROSIS
     Dosage: 8 MIU, EVERY 2D, SUBCUTANEOUS
     Route: 058
     Dates: start: 20050401
  2. ACETAMINOPHEN [Concomitant]
  3. VITAMIN B-12 [Concomitant]

REACTIONS (2)
  - GANGRENE [None]
  - INJECTION SITE INFECTION [None]
